FAERS Safety Report 8334592-7 (Version None)
Quarter: 2012Q2

REPORT INFORMATION
  Report Type: 
  Country: None (occurrence: None)
  Receive Date: 20120503
  Receipt Date: 20110520
  Transmission Date: 20120825
  Serious: No
  Sender: FDA-Public Use
  Company Number: US-TEVA-2011001949

PATIENT
  Sex: Male
  Weight: 90.8 kg

DRUGS (5)
  1. DIOVAN HCT [Concomitant]
     Dates: start: 20060101
  2. APLENZIN [Concomitant]
     Dates: start: 20080101
  3. VTORIN [Concomitant]
     Dates: start: 20060101
  4. NUVIGIL [Suspect]
     Indication: SLEEP APNOEA SYNDROME
     Dosage: 75 MILLIGRAM;
     Route: 048
     Dates: start: 20110407, end: 20110414
  5. LEXAPRO [Concomitant]
     Dates: start: 20080101

REACTIONS (2)
  - AGGRESSION [None]
  - DEPRESSION [None]
